FAERS Safety Report 7430139-8 (Version None)
Quarter: 2011Q2

REPORT INFORMATION
  Report Type: 
  Country: None (occurrence: None)
  Receive Date: 20110421
  Receipt Date: 20100303
  Transmission Date: 20111010
  Serious: No
  Sender: FDA-Public Use
  Company Number: US-ASTRAZENECA-2010SE09413

PATIENT
  Sex: Male

DRUGS (1)
  1. TOPROL-XL [Suspect]
     Route: 048

REACTIONS (5)
  - WALDENSTROM'S MACROGLOBULINAEMIA [None]
  - FATIGUE [None]
  - COLITIS [None]
  - SOMNOLENCE [None]
  - NEUROPATHY PERIPHERAL [None]
